FAERS Safety Report 19280899 (Version 1)
Quarter: 2021Q2

REPORT INFORMATION
  Report Type: Spontaneous
  Country: US (occurrence: US)
  Receive Date: 20210520
  Receipt Date: 20210520
  Transmission Date: 20210717
  Serious: No
  Sender: FDA-Public Use
  Company Number: US-MYLANLABS-2021M1028227

PATIENT
  Sex: Female

DRUGS (1)
  1. ESTRADIOL VAGINAL CREAM USP [Suspect]
     Active Substance: ESTRADIOL
     Indication: REPRODUCTIVE TRACT DISORDER
     Dosage: 0.01 MILLIGRAM, TWICE A WEEK AT BEDTIME
     Route: 066
     Dates: start: 20210324

REACTIONS (4)
  - Constipation [Not Recovered/Not Resolved]
  - Dysuria [Recovering/Resolving]
  - Feeling abnormal [Unknown]
  - Abdominal pain lower [Not Recovered/Not Resolved]
